FAERS Safety Report 8838208 (Version 1)
Quarter: 2012Q4

REPORT INFORMATION
  Report Type: Report from Study
  Country: CA (occurrence: CA)
  Receive Date: 20121012
  Receipt Date: 20121012
  Transmission Date: 20130627
  Serious: Yes (Other)
  Sender: FDA-Public Use
  Company Number: CA-JNJFOC-20121001329

PATIENT
  Age: 11 Year
  Sex: Male
  Weight: 43 kg

DRUGS (3)
  1. REMICADE [Suspect]
     Indication: COLITIS ULCERATIVE
     Route: 042
     Dates: start: 20120719
  2. HYDROCORTISONE [Concomitant]
     Indication: PREMEDICATION
     Route: 042
  3. PREDNISONE [Concomitant]
     Route: 065
     Dates: end: 20120917

REACTIONS (1)
  - Convulsion [Recovered/Resolved]
